FAERS Safety Report 4808350-1 (Version None)
Quarter: 2005Q4

REPORT INFORMATION
  Report Type: 
  Country: None (occurrence: None)
  Receive Date: 20051020
  Receipt Date: 20051020
  Transmission Date: 20060501
  Serious: No
  Sender: FDA-Public Use
  Company Number: None

PATIENT
  Age: 75 Year
  Sex: Female
  Weight: 69.4003 kg

DRUGS (1)
  1. ALENDRONATE SODIUM [Suspect]
     Indication: OSTEOPOROSIS
     Dosage: ONCE WEEKLY PO
     Route: 048

REACTIONS (3)
  - IMPAIRED HEALING [None]
  - TOOTH EXTRACTION [None]
  - TOOTHACHE [None]
